FAERS Safety Report 9109231 (Version 5)
Quarter: 2013Q2

REPORT INFORMATION
  Report Type: Report from Study
  Country: JP (occurrence: JP)
  Receive Date: 20130222
  Receipt Date: 20130508
  Transmission Date: 20140414
  Serious: Yes (Hospitalization)
  Sender: FDA-Public Use
  Company Number: JP-PFIZER INC-2013059384

PATIENT
  Age: 62 Year
  Sex: Female
  Weight: 53.8 kg

DRUGS (15)
  1. IRINOTECAN HCL [Suspect]
     Indication: COLON CANCER
     Dosage: 258 MG, CYCLIC
     Dates: start: 20121107
  2. IRINOTECAN HCL [Suspect]
     Dosage: 215 MG, CYCLIC
  3. FLUOROURACIL [Suspect]
     Indication: COLON CANCER
     Dosage: 572 MG, CYCLIC
     Route: 040
     Dates: start: 20121107
  4. FLUOROURACIL [Suspect]
     Dosage: 3432 MG, CONTINUOUS INFUSION, CYCLIC
     Route: 042
     Dates: start: 20121107, end: 20130118
  5. FLUOROURACIL [Suspect]
     Dosage: 286 MG, CYCLIC
     Route: 040
  6. FLUOROURACIL [Suspect]
     Dosage: 2860 MG, CONTINUOUS INFUSION, CYCLIC
     Route: 042
  7. FOLINIC ACID [Suspect]
     Indication: COLON CANCER
     Dosage: 572 MG, CYCLIC
     Dates: start: 20121107
  8. BLINDED THERAPY [Suspect]
     Indication: COLON CANCER
     Dosage: 416 MG, CYCLIC
     Dates: start: 20121107
  9. DIOVAN [Concomitant]
     Indication: HYPERTENSION
     Dosage: UNK
     Dates: start: 20120316
  10. LYRICA [Concomitant]
     Dosage: UNK
     Dates: start: 20120316
  11. MAGLAX [Concomitant]
     Dosage: UNK
     Dates: start: 20121121
  12. LOXOPROFEN [Concomitant]
     Dosage: UNK
     Dates: start: 20130104
  13. LOXONIN [Concomitant]
     Dosage: UNK
     Dates: start: 20130104
  14. HIRUDOID [Concomitant]
     Dosage: UNK
     Dates: start: 20121121
  15. ANTEBATE [Concomitant]
     Dosage: UNK
     Dates: start: 20130104

REACTIONS (1)
  - Aortic dissection [Recovering/Resolving]
